FAERS Safety Report 10191006 (Version 3)
Quarter: 2014Q2

REPORT INFORMATION
  Report Type: Spontaneous
  Country: US (occurrence: US)
  Receive Date: 20140523
  Receipt Date: 20140605
  Transmission Date: 20141212
  Serious: Yes (Hospitalization, Other)
  Sender: FDA-Public Use
  Company Number: US-ROCHE-1202242

PATIENT
  Age: 84 Year
  Sex: Male

DRUGS (19)
  1. ERIVEDGE [Suspect]
     Indication: BASAL CELL CARCINOMA
     Route: 048
     Dates: start: 20130123
  2. ACARBOSE [Concomitant]
  3. ADVAIR [Concomitant]
  4. ASPIRIN [Concomitant]
  5. ATENOLOL [Concomitant]
  6. LISINOPRIL [Concomitant]
  7. LORTAB [Concomitant]
  8. LOVAZA [Concomitant]
  9. MUCINEX [Concomitant]
  10. NOVOLIN [Concomitant]
  11. SPIRIVA [Concomitant]
  12. THEOPHYLLINE [Concomitant]
  13. AZITHROMYCIN [Concomitant]
  14. HIBICLENS [Concomitant]
  15. COUMADIN [Concomitant]
  16. CRESTOR [Concomitant]
  17. EFUDEX [Concomitant]
  18. LASIX [Concomitant]
  19. EFUDEX CREAM [Concomitant]

REACTIONS (20)
  - Abasia [Recovering/Resolving]
  - Scab [Not Recovered/Not Resolved]
  - Asthenia [Recovering/Resolving]
  - Weight decreased [Not Recovered/Not Resolved]
  - Squamous cell carcinoma [Recovered/Resolved]
  - Drug dose omission [Unknown]
  - Diarrhoea [Unknown]
  - Gait disturbance [Unknown]
  - Cystitis [Not Recovered/Not Resolved]
  - Pain in extremity [Not Recovered/Not Resolved]
  - Myalgia [Not Recovered/Not Resolved]
  - Hepatic enzyme increased [Recovered/Resolved]
  - Arthralgia [Unknown]
  - Fatigue [Unknown]
  - Constipation [Recovered/Resolved]
  - Decreased appetite [Unknown]
  - Medication error [Unknown]
  - Nausea [Recovered/Resolved]
  - Ageusia [Not Recovered/Not Resolved]
  - Dysgeusia [Not Recovered/Not Resolved]
